FAERS Safety Report 8046664-5 (Version None)
Quarter: 2012Q1

REPORT INFORMATION
  Report Type: 
  Country: None (occurrence: None)
  Receive Date: 20120115
  Receipt Date: 20111020
  Transmission Date: 20120608
  Serious: No
  Sender: FDA-Public Use
  Company Number: US-ALLERGAN-1113929US

PATIENT
  Sex: Male

DRUGS (1)
  1. ALOCRIL [Suspect]
     Indication: PRODUCT USED FOR UNKNOWN INDICATION

REACTIONS (1)
  - HEADACHE [None]
